FAERS Safety Report 5212370-5 (Version None)
Quarter: 2006Q4

REPORT INFORMATION
  Report Type: 
  Country: None (occurrence: None)
  Receive Date: 20061130
  Receipt Date: 20060705
  Transmission Date: 20070319
  Serious: Yes (Other)
  Sender: FDA-Public Use
  Company Number: WAES 0607USA00822

PATIENT
  Age: 77 Year
  Sex: Male
  Weight: 81.1939 kg

DRUGS (4)
  1. FOSAMAX [Suspect]
     Indication: OSTEOPOROSIS
     Dosage: PO
     Route: 048
     Dates: start: 19960101, end: 20060401
  2. COZAAR [Concomitant]
  3. HYTRIN [Concomitant]
  4. PROSCAR [Concomitant]

REACTIONS (11)
  - COLONIC POLYP [None]
  - DEHYDRATION [None]
  - DIARRHOEA [None]
  - EAR PRURITUS [None]
  - GASTRITIS [None]
  - HYPOAESTHESIA [None]
  - IRRITABLE BOWEL SYNDROME [None]
  - NOCTURIA [None]
  - OSTEONECROSIS [None]
  - PARAESTHESIA [None]
  - SINUSITIS [None]
